FAERS Safety Report 22899050 (Version 3)
Quarter: 2023Q4

REPORT INFORMATION
  Report Type: Spontaneous
  Country: GB (occurrence: GB)
  Receive Date: 20230904
  Receipt Date: 20231104
  Transmission Date: 20240109
  Serious: Yes (Other)
  Sender: FDA-Public Use
  Company Number: GB-MACLEODS PHARMACEUTICALS US LTD-MAC2023043215

PATIENT

DRUGS (4)
  1. DONEPEZIL [Suspect]
     Active Substance: DONEPEZIL
     Indication: Dementia Alzheimer^s type
     Dosage: 10 MILLIGRAM, QD
     Route: 065
     Dates: start: 20230705, end: 20230918
  2. DONEPEZIL [Suspect]
     Active Substance: DONEPEZIL
     Indication: Dementia
     Dosage: 10 MILLIGRAM, QD
     Route: 065
     Dates: start: 20230705, end: 20230918
  3. DONEPEZIL [Suspect]
     Active Substance: DONEPEZIL
     Dosage: 5 MILLIGRAM, QD
     Route: 065
  4. DONEPEZIL [Suspect]
     Active Substance: DONEPEZIL
     Dosage: 10 MILLIGRAM, QD
     Route: 065

REACTIONS (9)
  - Pleurothotonus [Recovered/Resolved]
  - Abnormal loss of weight [Not Recovered/Not Resolved]
  - Asthenia [Unknown]
  - Pollakiuria [Unknown]
  - Headache [Unknown]
  - Muscle spasms [Unknown]
  - Insomnia [Unknown]
  - Fatigue [Unknown]
  - Medication error [Unknown]
